FAERS Safety Report 23235085 (Version 4)
Quarter: 2024Q3

REPORT INFORMATION
  Report Type: Spontaneous
  Country: US (occurrence: US)
  Receive Date: 20231128
  Receipt Date: 20240701
  Transmission Date: 20241016
  Serious: Yes (Other)
  Sender: PFIZER
  Company Number: US-PFIZER INC-202300396482

PATIENT
  Age: 66 Year
  Sex: Female
  Weight: 75.75 kg

DRUGS (1)
  1. OXBRYTA [Suspect]
     Active Substance: VOXELOTOR
     Indication: Sickle cell anaemia
     Dosage: 500MG, 3 TABLETS ONCE DAILY
     Route: 048

REACTIONS (9)
  - Haemoglobin decreased [Unknown]
  - Post-acute COVID-19 syndrome [Unknown]
  - Haematocrit abnormal [Unknown]
  - Kyphosis [Unknown]
  - Body height decreased [Unknown]
  - COVID-19 [Unknown]
  - Lung disorder [Not Recovered/Not Resolved]
  - Dyspnoea [Not Recovered/Not Resolved]
  - Product dose omission in error [Unknown]

NARRATIVE: CASE EVENT DATE: 20230701
